FAERS Safety Report 6178474-8 (Version None)
Quarter: 2009Q2

REPORT INFORMATION
  Report Type: 
  Country: None (occurrence: None)
  Receive Date: 20090504
  Receipt Date: 20070507
  Transmission Date: 20091009
  Serious: No
  Sender: FDA-Public Use
  Company Number: US-ALEXION-A200700008

PATIENT

DRUGS (10)
  1. SOLIRIS [Suspect]
     Indication: PAROXYSMAL NOCTURNAL HAEMOGLOBINURIA
     Dosage: UNK, SINGLE
     Route: 042
     Dates: start: 20070423, end: 20070423
  2. SOLIRIS [Suspect]
     Dosage: 600 MG, SINGLE
     Route: 042
     Dates: start: 20070430, end: 20070430
  3. SOLIRIS [Suspect]
     Dosage: UNK, SINGLE
     Route: 042
     Dates: start: 20070507, end: 20070507
  4. FOLIC ACID [Concomitant]
     Dosage: 2 MG, QD
     Route: 048
  5. FERROUS SULFATE TAB [Concomitant]
     Dosage: 25 MG, QD
     Route: 048
  6. ASPIRIN [Concomitant]
     Dosage: 81 MG, QD
     Route: 048
  7. NEXIUM [Concomitant]
     Dosage: 40 MG, QD
     Route: 048
  8. PREDNISONE [Concomitant]
     Dosage: 30 MG, QD
     Route: 048
  9. CALCIUM [Concomitant]
     Dosage: 1000 MG, QD
     Route: 048
  10. VITAMIN A [Concomitant]
     Dosage: 400 MG, QD
     Route: 048

REACTIONS (1)
  - TOOTHACHE [None]
